FAERS Safety Report 21267595 (Version 1)
Quarter: 2022Q3

REPORT INFORMATION
  Report Type: Spontaneous
  Country: GB (occurrence: GB)
  Receive Date: 20220829
  Receipt Date: 20220829
  Transmission Date: 20221027
  Serious: Yes (Other)
  Sender: FDA-Public Use
  Company Number: GB-MHRA-MED-202208211939459750-DCQST

PATIENT
  Age: 44 Year
  Sex: Female
  Weight: 108 kg

DRUGS (8)
  1. AJOVY [Suspect]
     Active Substance: FREMANEZUMAB-VFRM
     Indication: Migraine
     Dates: start: 20201218, end: 20210312
  2. CYCLIZINE [Concomitant]
     Active Substance: CYCLIZINE
     Indication: Nausea
  3. ESOMEPRAZOLE [Concomitant]
     Active Substance: ESOMEPRAZOLE
     Indication: Reflux gastritis
  4. FEXOFENADINE [Concomitant]
     Active Substance: FEXOFENADINE HYDROCHLORIDE
     Indication: Hypersensitivity
  5. MERCURY PHARMS FERROUS FUMARATE [Concomitant]
     Indication: Anaemia
  6. ORLISTAT [Concomitant]
     Active Substance: ORLISTAT
     Indication: Weight decreased
  7. PREGABALIN [Concomitant]
     Active Substance: PREGABALIN
     Indication: Migraine
  8. STEXEROL-D3 [Concomitant]
     Indication: Osteoporosis

REACTIONS (1)
  - Raynaud^s phenomenon [Not Recovered/Not Resolved]

NARRATIVE: CASE EVENT DATE: 20201218
